FAERS Safety Report 12374590 (Version 2)
Quarter: 2016Q2

REPORT INFORMATION
  Report Type: Report from Study
  Country: MX (occurrence: MX)
  Receive Date: 20160517
  Receipt Date: 20160615
  Transmission Date: 20160815
  Serious: Yes (Other)
  Sender: FDA-Public Use
  Company Number: PHHY2016MX066203

PATIENT
  Sex: Female

DRUGS (4)
  1. HYDREA [Concomitant]
     Active Substance: HYDROXYUREA
     Indication: PLATELET COUNT INCREASED
     Dosage: MORE THAN 5 YEARS, 1 DF, QD
     Route: 048
  2. EXELON PATCH [Suspect]
     Active Substance: RIVASTIGMINE
     Indication: SENILE DEMENTIA
  3. EXELON PATCH [Suspect]
     Active Substance: RIVASTIGMINE
     Indication: CEREBRAL INFARCTION
  4. EXELON PATCH [Suspect]
     Active Substance: RIVASTIGMINE
     Indication: HEAD DISCOMFORT
     Dosage: PATCH 10 CM2
     Route: 062

REACTIONS (3)
  - Cerebral infarction [Unknown]
  - Product use issue [Not Recovered/Not Resolved]
  - Speech disorder [Unknown]
